FAERS Safety Report 4659733-4 (Version None)
Quarter: 2005Q2

REPORT INFORMATION
  Report Type: 
  Country: None (occurrence: None)
  Receive Date: 20050512
  Receipt Date: 20050505
  Transmission Date: 20051028
  Serious: Yes (Life-Threatening, Hospitalization, Disabling, Other)
  Sender: FDA-Public Use
  Company Number: US-RB-1596-2005

PATIENT
  Age: 18 Year
  Sex: Male

DRUGS (1)
  1. SUBOXONE [Suspect]
     Indication: DRUG DEPENDENCE
     Route: 060
     Dates: start: 20050427, end: 20050504

REACTIONS (1)
  - HEPATIC ENCEPHALOPATHY [None]
